FAERS Safety Report 20404273 (Version 4)
Quarter: 2022Q2

REPORT INFORMATION
  Report Type: Report from Study
  Country: AR (occurrence: AR)
  Receive Date: 20220131
  Receipt Date: 20220424
  Transmission Date: 20220721
  Serious: Yes (Hospitalization, Other)
  Sender: FDA-Public Use
  Company Number: AR-NOVARTISPH-NVSC2022AR019382

PATIENT
  Age: 69 Year
  Sex: Female

DRUGS (2)
  1. COSENTYX [Suspect]
     Active Substance: SECUKINUMAB
     Indication: Psoriasis
     Dosage: 300 MG, QMO (VIAL) (ANTI-IL 17)
     Route: 058
     Dates: start: 20171024, end: 20220101
  2. COSENTYX [Suspect]
     Active Substance: SECUKINUMAB
     Indication: Psoriatic arthropathy

REACTIONS (5)
  - Pneumonia [Unknown]
  - COVID-19 [Unknown]
  - Respiratory disorder [Unknown]
  - Superinfection bacterial [Unknown]
  - Illness [Unknown]

NARRATIVE: CASE EVENT DATE: 20220101
